FAERS Safety Report 19717659 (Version 1)
Quarter: 2021Q3

REPORT INFORMATION
  Report Type: Spontaneous
  Country: US (occurrence: US)
  Receive Date: 20210818
  Receipt Date: 20210818
  Transmission Date: 20211014
  Serious: Yes (Death, Hospitalization, Other)
  Sender: FDA-Public Use
  Company Number: US-AMGEN-USASP2021123359

PATIENT

DRUGS (7)
  1. DOCETAXEL. [Concomitant]
     Active Substance: DOCETAXEL
     Dosage: 75 MILLIGRAM/SQ. METER
     Route: 042
  2. DIPHENHYDRAMINE. [Concomitant]
     Active Substance: DIPHENHYDRAMINE
     Dosage: 50 MILLIGRAM
  3. RANITIDINE. [Concomitant]
     Active Substance: RANITIDINE
     Dosage: 50 MILLIGRAM
  4. NEULASTA [Suspect]
     Active Substance: PEGFILGRASTIM
     Indication: PROPHYLAXIS
     Dosage: 6 MILLIGRAM, ON DAY TWO OF EACH CYCLE
     Route: 058
  5. DEXAMETHASONE. [Concomitant]
     Active Substance: DEXAMETHASONE
     Dosage: 20 MILLIGRAM
  6. EPIRUBICIN [Concomitant]
     Active Substance: EPIRUBICIN
     Dosage: 75 MILLIGRAM/SQ. METER
     Route: 042
  7. GRANISETRON [Concomitant]
     Active Substance: GRANISETRON
     Dosage: 1 MILLIGRAM
     Route: 048

REACTIONS (19)
  - Breast cancer [Fatal]
  - Fatigue [Unknown]
  - Febrile neutropenia [Fatal]
  - Neutropenia [Unknown]
  - Nausea [Unknown]
  - Constipation [Unknown]
  - Multiple organ dysfunction syndrome [Fatal]
  - Neuropathy peripheral [Unknown]
  - Breast cancer recurrent [Unknown]
  - Cardiotoxicity [Unknown]
  - Nail disorder [Unknown]
  - Septic shock [Fatal]
  - Anaemia [Unknown]
  - Stomatitis [Unknown]
  - Myalgia [Unknown]
  - Thrombocytopenia [Unknown]
  - Rash [Unknown]
  - Oedema [Unknown]
  - Diarrhoea [Unknown]
